FAERS Safety Report 14711067 (Version 3)
Quarter: 2020Q4

REPORT INFORMATION
  Report Type: Report from Study
  Country: US (occurrence: US)
  Receive Date: 20180403
  Receipt Date: 20201202
  Transmission Date: 20210113
  Serious: No
  Sender: FDA-Public Use
  Company Number: US-TAKEDA-2018TUS008197

PATIENT
  Age: 42 Year
  Sex: Male
  Weight: 110 kg

DRUGS (1)
  1. VEDOLIZUMAB [Suspect]
     Active Substance: VEDOLIZUMAB
     Indication: CROHN^S DISEASE
     Dosage: 300 MILLIGRAM
     Route: 042
     Dates: start: 20180323

REACTIONS (2)
  - Accident at work [Unknown]
  - Pyrexia [Unknown]

NARRATIVE: CASE EVENT DATE: 20180327
